FAERS Safety Report 15885947 (Version 1)
Quarter: 2019Q1

REPORT INFORMATION
  Report Type: Spontaneous
  Country: FR (occurrence: FR)
  Receive Date: 20190129
  Receipt Date: 20190129
  Transmission Date: 20190417
  Serious: Yes (Hospitalization)
  Sender: FDA-Public Use
  Company Number: FR-TEVA-2019-FR-1004206

PATIENT
  Age: 80 Year
  Sex: Female
  Weight: 60 kg

DRUGS (8)
  1. FUROSEMIDE. [Suspect]
     Active Substance: FUROSEMIDE
     Indication: HYPERTENSION
     Dosage: 80 MILLIGRAM DAILY;
     Route: 048
     Dates: end: 201808
  2. VERAPAMIL (CHLORHYDRATE DE) [Suspect]
     Active Substance: VERAPAMIL HYDROCHLORIDE
     Indication: HYPERTENSION
     Dosage: 240 MILLIGRAM DAILY;
     Route: 048
     Dates: end: 201808
  3. FLUOXETINE (CHLORHYDRATE DE) [Suspect]
     Active Substance: FLUOXETINE HYDROCHLORIDE
     Indication: DEPRESSION
     Dosage: 10 MILLIGRAM DAILY;
     Route: 048
     Dates: end: 20180828
  4. BISOPROLOL (HEMIFUMARATE DE) [Suspect]
     Active Substance: BISOPROLOL FUMARATE
     Indication: HYPERTENSION
     Dosage: 10 MILLIGRAM DAILY;
  5. OLANZAPINE. [Suspect]
     Active Substance: OLANZAPINE
     Indication: MENTAL DISORDER
     Dosage: 5 MILLIGRAM DAILY;
     Route: 048
     Dates: end: 20180828
  6. MIANSERINE (CHLORHYDRATE DE) [Suspect]
     Active Substance: MIANSERIN HYDROCHLORIDE
     Indication: DEPRESSION
     Dosage: 30 MILLIGRAM DAILY;
     Route: 048
     Dates: end: 20180828
  7. PANTOPRAZOLE [Suspect]
     Active Substance: PANTOPRAZOLE
     Indication: GASTROOESOPHAGEAL REFLUX DISEASE
     Dosage: 40 MILLIGRAM DAILY;
     Route: 048
  8. COTAREG 160 MG/25 MG, COMPRIM? PELLICUL? [Suspect]
     Active Substance: HYDROCHLOROTHIAZIDE\VALSARTAN
     Indication: HYPERTENSION
     Dosage: 1 CP
     Route: 048
     Dates: end: 201808

REACTIONS (3)
  - Abnormal behaviour [Recovered/Resolved with Sequelae]
  - Hyponatraemia [Recovered/Resolved]
  - Parkinsonism [Recovering/Resolving]

NARRATIVE: CASE EVENT DATE: 201808
